FAERS Safety Report 9168669 (Version 1)
Quarter: 2013Q1

REPORT INFORMATION
  Report Type: Spontaneous
  Country: US (occurrence: US)
  Receive Date: 20130318
  Receipt Date: 20130318
  Transmission Date: 20140127
  Serious: No
  Sender: FDA-Public Use
  Company Number: US-009507513-1303USA007940

PATIENT
  Sex: Female

DRUGS (4)
  1. ZIOPTAN [Suspect]
  2. SYNTHROID [Concomitant]
  3. MICARDIS [Concomitant]
  4. VITAMINS (UNSPECIFIED) [Concomitant]

REACTIONS (1)
  - Foreign body sensation in eyes [Unknown]
